FAERS Safety Report 16932807 (Version 2)
Quarter: 2019Q4

REPORT INFORMATION
  Report Type: Spontaneous
  Country: US (occurrence: US)
  Receive Date: 20191018
  Receipt Date: 20191107
  Transmission Date: 20200122
  Serious: No
  Sender: FDA-Public Use
  Company Number: US-MSN LABORATORIES PRIVATE LIMITED-2075805

PATIENT
  Age: 58 Year
  Sex: Female
  Weight: 71.21 kg

DRUGS (2)
  1. FIORICET [Concomitant]
     Active Substance: ACETAMINOPHEN\BUTALBITAL\CAFFEINE
     Route: 065
  2. PREGABALIN. [Suspect]
     Active Substance: PREGABALIN
     Indication: MIGRAINE
     Route: 048
     Dates: start: 201906, end: 20190924

REACTIONS (4)
  - Drug ineffective for unapproved indication [Unknown]
  - Drug tolerance decreased [Recovered/Resolved]
  - Product dose omission [Unknown]
  - Fatigue [Recovered/Resolved]
